FAERS Safety Report 11752979 (Version 1)
Quarter: 2015Q4

REPORT INFORMATION
  Report Type: Report from Study
  Country: BR (occurrence: BR)
  Receive Date: 20151119
  Receipt Date: 20151119
  Transmission Date: 20160304
  Serious: Yes (Hospitalization)
  Sender: FDA-Public Use
  Company Number: BR-ROCHE-1620539

PATIENT
  Sex: Female
  Weight: 57 kg

DRUGS (12)
  1. MABTHERA [Suspect]
     Active Substance: RITUXIMAB
     Indication: RHEUMATOID ARTHRITIS
     Route: 042
     Dates: start: 2014
  2. AZATHIOPRINE. [Concomitant]
     Active Substance: AZATHIOPRINE
     Indication: SJOGREN^S SYNDROME
  3. REUQUINOL [Concomitant]
     Active Substance: HYDROXYCHLOROQUINE SULFATE
     Indication: BONE DISORDER
     Route: 065
  4. PLAQUINOL [Concomitant]
     Active Substance: HYDROXYCHLOROQUINE SULFATE
     Indication: BONE DISORDER
     Route: 065
  5. FLAXSEED [Concomitant]
     Active Substance: FLAX SEED
  6. PLAQUINOL [Concomitant]
     Active Substance: HYDROXYCHLOROQUINE SULFATE
     Indication: RHEUMATIC DISORDER
  7. OMEPRAZOLE. [Concomitant]
     Active Substance: OMEPRAZOLE
     Indication: PROPHYLAXIS
     Route: 065
  8. ATORVASTATIN [Concomitant]
     Active Substance: ATORVASTATIN
     Indication: HYPERCHOLESTEROLAEMIA
     Route: 065
  9. PREDNISONE. [Concomitant]
     Active Substance: PREDNISONE
     Route: 065
  10. LOSARTAN. [Concomitant]
     Active Substance: LOSARTAN
     Indication: BLOOD PRESSURE ABNORMAL
     Route: 065
  11. LEVOTHYROXINE. [Concomitant]
     Active Substance: LEVOTHYROXINE
     Indication: HYPOTHYROIDISM
     Route: 065
  12. METHOTREXATE [Concomitant]
     Active Substance: METHOTREXATE
     Indication: SJOGREN^S SYNDROME
     Route: 065

REACTIONS (12)
  - Pain in extremity [Not Recovered/Not Resolved]
  - Burning sensation [Unknown]
  - Osteopenia [Unknown]
  - Exostosis [Unknown]
  - Erythema [Unknown]
  - Feeling hot [Unknown]
  - Influenza [Unknown]
  - Tendon rupture [Unknown]
  - Hypercholesterolaemia [Unknown]
  - Localised infection [Unknown]
  - Swelling face [Unknown]
  - Migraine [Unknown]
